FAERS Safety Report 7354003-8 (Version None)
Quarter: 2011Q1

REPORT INFORMATION
  Report Type: 
  Country: None (occurrence: None)
  Receive Date: 20110315
  Receipt Date: 20110304
  Transmission Date: 20110831
  Serious: Yes (Death, Hospitalization)
  Sender: FDA-Public Use
  Company Number: PHHO2011ES03041

PATIENT
  Sex: Female
  Weight: 92 kg

DRUGS (7)
  1. SILDENAFIL [Concomitant]
  2. FUROSEMIDE [Concomitant]
  3. OXYGEN [Concomitant]
  4. SPIRONOLACTONE [Concomitant]
  5. SINTROM [Concomitant]
  6. ILOPROST [Concomitant]
  7. STI571/CGP57148B [Suspect]
     Indication: PULMONARY ARTERIAL HYPERTENSION
     Dosage: UNK
     Route: 048
     Dates: start: 20101103, end: 20110303

REACTIONS (7)
  - CONFUSIONAL STATE [None]
  - CARDIAC ARREST [None]
  - ESCHERICHIA BACTERAEMIA [None]
  - CONVULSION [None]
  - CEREBRAL DISORDER [None]
  - PSEUDOMEMBRANOUS COLITIS [None]
  - HYPONATRAEMIA [None]
